FAERS Safety Report 7676885-2 (Version None)
Quarter: 2011Q3

REPORT INFORMATION
  Report Type: 
  Country: None (occurrence: None)
  Receive Date: 20110811
  Receipt Date: 20110805
  Transmission Date: 20111222
  Serious: Yes (Death, Other)
  Sender: FDA-Public Use
  Company Number: PHHY2011IT71594

PATIENT
  Age: 5 Day

DRUGS (1)
  1. METHERGINE [Suspect]
     Route: 048

REACTIONS (13)
  - VOMITING [None]
  - TACHYPNOEA [None]
  - BRADYCARDIA [None]
  - VENOUS INSUFFICIENCY [None]
  - MYDRIASIS [None]
  - DEATH [None]
  - APNOEA [None]
  - ACCIDENTAL EXPOSURE [None]
  - DYSPNOEA [None]
  - HYPERTONIA [None]
  - GASTROINTESTINAL HYPERMOTILITY [None]
  - CYANOSIS [None]
  - DIARRHOEA [None]
